FAERS Safety Report 18608104 (Version 1)
Quarter: 2020Q4

REPORT INFORMATION
  Report Type: Spontaneous
  Country: ES (occurrence: ES)
  Receive Date: 20201212
  Receipt Date: 20201212
  Transmission Date: 20210114
  Serious: Yes (Hospitalization)
  Sender: FDA-Public Use
  Company Number: ES-LUPIN PHARMACEUTICALS INC.-2020-03429

PATIENT
  Age: 85 Year
  Sex: Male

DRUGS (3)
  1. RIFAMPIN. [Suspect]
     Active Substance: RIFAMPIN
     Indication: PERITONITIS
     Dosage: UNK
     Route: 048
     Dates: start: 201607
  2. UROKINASE [Suspect]
     Active Substance: UROKINASE
     Indication: PERITONITIS
     Dosage: UNK
     Route: 065
     Dates: start: 201607
  3. TAUROLOCK HEP100 [Suspect]
     Active Substance: HEPARIN SODIUM\SODIUM CITRATE\TAUROLIDINE
     Indication: PERITONITIS
     Dosage: UNK
     Route: 065
     Dates: start: 201604

REACTIONS (1)
  - Drug ineffective [Unknown]
